FAERS Safety Report 9877304 (Version 2)
Quarter: 2014Q1

REPORT INFORMATION
  Report Type: Spontaneous
  Country: JP (occurrence: JP)
  Receive Date: 20140206
  Receipt Date: 20140212
  Transmission Date: 20141002
  Serious: Yes (Death, Hospitalization)
  Sender: FDA-Public Use
  Company Number: JP-OTSUKA-JP-2014-10458

PATIENT
  Age: 84 Year
  Sex: Female

DRUGS (6)
  1. PLETAAL [Suspect]
     Indication: CEREBRAL INFARCTION
     Dosage: 200 MG MILLIGRAM(S), DAILY DOSE
     Route: 048
     Dates: start: 20140103, end: 20140131
  2. PLETAAL [Suspect]
     Indication: CEREBRAL INFARCTION
     Route: 048
  3. DIART [Concomitant]
     Dosage: UNK
     Route: 048
     Dates: start: 20140127, end: 20140131
  4. ARTIST [Concomitant]
     Dosage: UNK
     Route: 048
     Dates: start: 20140127, end: 20140131
  5. PREMINENT [Concomitant]
     Dosage: UNK
     Route: 048
     Dates: start: 20140127, end: 20140131
  6. GASPORT [Concomitant]
     Route: 065

REACTIONS (2)
  - Ventricular fibrillation [Fatal]
  - Cardiac failure [Unknown]
